FAERS Safety Report 10159531 (Version 2)
Quarter: 2014Q2

REPORT INFORMATION
  Report Type: Spontaneous
  Country: CA (occurrence: CA)
  Receive Date: 20140508
  Receipt Date: 20140610
  Transmission Date: 20141212
  Serious: Yes (Life-Threatening)
  Sender: FDA-Public Use
  Company Number: CA-SA-2014SA053938

PATIENT
  Age: 21 Year
  Sex: Male
  Weight: 113.63 kg

DRUGS (4)
  1. ALLERJECT [Suspect]
     Indication: MULTIPLE ALLERGIES
     Dosage: DOSE: AS DIRECTED
     Route: 030
  2. ALLERJECT [Suspect]
     Indication: MULTIPLE ALLERGIES
     Dosage: DOSE: AS DIRECTED
     Route: 030
  3. SALBUTAMOL [Concomitant]
     Indication: ASTHMA
     Dosage: DOSE: AS DIRECTED
     Route: 055
  4. EPIPEN [Concomitant]
     Indication: MULTIPLE ALLERGIES
     Dosage: DOSE: AS DIRECTED
     Route: 030

REACTIONS (3)
  - Anaphylactic reaction [Recovered/Resolved]
  - Drug ineffective [Unknown]
  - Needle issue [Unknown]
